FAERS Safety Report 9223482 (Version 2)
Quarter: 2013Q2

REPORT INFORMATION
  Report Type: Spontaneous
  Country: US (occurrence: US)
  Receive Date: 20130410
  Receipt Date: 20130415
  Transmission Date: 20140414
  Serious: Yes (Other)
  Sender: FDA-Public Use
  Company Number: US-ASTRAZENECA-2013SE22109

PATIENT
  Age: 67 Day
  Sex: Female

DRUGS (9)
  1. SYNAGIS [Suspect]
     Indication: RESPIRATORY SYNCYTIAL VIRUS INFECTION
     Dosage: 50 MG/0.5 ML,15 MG/KG ONCE A MONTH
     Route: 030
     Dates: start: 20130307
  2. POLY-VI-SOL WITH IRON [Concomitant]
     Route: 048
  3. ERYTHROMYCIN [Concomitant]
     Dosage: ONCE
     Dates: start: 20130118, end: 20130118
  4. VITAMIN K [Concomitant]
     Dosage: ONCE
     Dates: start: 20130118, end: 20130118
  5. AMPICILLIN [Concomitant]
     Dates: start: 20130118, end: 20130120
  6. GENTAMICIN [Concomitant]
     Dates: start: 20130118, end: 20130120
  7. CAFFEINE CITRATE [Concomitant]
     Dates: start: 20130119, end: 20130220
  8. SURVANTA [Concomitant]
     Dosage: ONCE
     Dates: start: 20130119, end: 20130119
  9. VITAMIN D [Concomitant]
     Dates: start: 20130130, end: 20130210

REACTIONS (2)
  - Gastrooesophageal reflux disease [Recovered/Resolved]
  - Choking [Unknown]
